FAERS Safety Report 17376394 (Version 1)
Quarter: 2020Q1

REPORT INFORMATION
  Report Type: Spontaneous
  Country: US (occurrence: US)
  Receive Date: 20200205
  Receipt Date: 20200205
  Transmission Date: 20200409
  Serious: Yes (Other)
  Sender: FDA-Public Use
  Company Number: None

PATIENT
  Age: 62 Year
  Sex: Female
  Weight: 110.25 kg

DRUGS (1)
  1. RENFLEXIS [Suspect]
     Active Substance: INFLIXIMAB-ABDA
     Indication: PSORIATIC ARTHROPATHY
     Dosage: ?          QUANTITY:800 800;OTHER FREQUENCY:EVERY 6 WEEKS;?
     Route: 042
     Dates: start: 20191220

REACTIONS (3)
  - Adverse drug reaction [None]
  - Pneumonia [None]
  - Malaise [None]

NARRATIVE: CASE EVENT DATE: 20200201
